FAERS Safety Report 8502420-2 (Version None)
Quarter: 2012Q3

REPORT INFORMATION
  Report Type: 
  Country: None (occurrence: None)
  Receive Date: 20120711
  Receipt Date: 20120707
  Transmission Date: 20120928
  Serious: Yes (Other)
  Sender: FDA-Public Use
  Company Number: PHHY2012DK058703

PATIENT
  Age: 18 Year

DRUGS (1)
  1. METHYLPHENIDATE [Suspect]

REACTIONS (1)
  - SEXUAL ABUSE [None]
